FAERS Safety Report 7390337-9 (Version None)
Quarter: 2011Q2

REPORT INFORMATION
  Report Type: 
  Country: None (occurrence: None)
  Receive Date: 20110401
  Receipt Date: 20110330
  Transmission Date: 20111010
  Serious: Yes (Other)
  Sender: FDA-Public Use
  Company Number: US-PFIZER INC-2011064451

PATIENT
  Sex: Female

DRUGS (1)
  1. CORTONE [Suspect]
     Dosage: 5 MG, UNK

REACTIONS (3)
  - SWELLING [None]
  - GASTRIC DISORDER [None]
  - CONSTIPATION [None]
